FAERS Safety Report 18890235 (Version 1)
Quarter: 2021Q1

REPORT INFORMATION
  Report Type: Spontaneous
  Country: US (occurrence: US)
  Receive Date: 20210214
  Receipt Date: 20210214
  Transmission Date: 20210420
  Serious: No
  Sender: FDA-Public Use
  Company Number: US-SA-2021SA043586

PATIENT
  Age: 9 Year
  Sex: Male

DRUGS (1)
  1. LUMIZYME [Suspect]
     Active Substance: ALGLUCOSIDASE ALFA
     Dosage: DRUG STRUCTURE DOSAGE : UTR DRUG INTERVAL DOSAGE : UTR DRUG TREATMENT DURATION: SEE NARRATIVE

REACTIONS (2)
  - Product dose omission issue [Unknown]
  - Malaise [Unknown]
